FAERS Safety Report 5302272-8 (Version None)
Quarter: 2007Q2

REPORT INFORMATION
  Report Type: 
  Country: None (occurrence: None)
  Receive Date: 20070412
  Receipt Date: 20070327
  Transmission Date: 20071010
  Serious: Yes (Hospitalization)
  Sender: FDA-Public Use
  Company Number: 8021946

PATIENT
  Age: 65 Year
  Sex: Male
  Weight: 78 kg

DRUGS (4)
  1. KEPPRA [Suspect]
     Indication: EPILEPSY
     Dosage: 1000 MG 2/D PO
     Route: 048
     Dates: start: 20051101
  2. MELPERON [Suspect]
     Indication: AGGRESSION
     Dosage: 50 DF 2/D PO
     Route: 048
     Dates: start: 20050801, end: 20070201
  3. MELPERON [Suspect]
     Indication: ANXIETY
     Dosage: 50 DF 2/D PO
     Route: 048
     Dates: start: 20050801, end: 20070201
  4. VALPROIC ACID [Concomitant]

REACTIONS (1)
  - NEPHRITIS INTERSTITIAL [None]
